FAERS Safety Report 23634928 (Version 1)
Quarter: 2024Q1

REPORT INFORMATION
  Report Type: Spontaneous
  Country: US (occurrence: US)
  Receive Date: 20240315
  Receipt Date: 20240315
  Transmission Date: 20240410
  Serious: No
  Sender: FDA-Public Use
  Company Number: US-LUPIN PHARMACEUTICALS INC.-2024-02071

PATIENT

DRUGS (2)
  1. ALBUTEROL SULFATE [Suspect]
     Active Substance: ALBUTEROL SULFATE
     Indication: Asthma
     Dosage: UNK, PRN, 1 PUFF EVERY 6 HOURS AS NEEDED
     Dates: start: 20240221
  2. ALBUTEROL SULFATE [Suspect]
     Active Substance: ALBUTEROL SULFATE
     Dosage: UNK, PRN, 1 PUFF EVERY 6 HOURS AS NEEDED
     Dates: start: 20240226

REACTIONS (4)
  - Chest discomfort [Unknown]
  - Lower respiratory tract congestion [Unknown]
  - Drug dose omission by device [Unknown]
  - Device delivery system issue [Unknown]
